FAERS Safety Report 9688190 (Version 1)
Quarter: 2013Q4

REPORT INFORMATION
  Report Type: Spontaneous
  Country: US (occurrence: US)
  Receive Date: 20131114
  Receipt Date: 20131114
  Transmission Date: 20140711
  Serious: Yes (Hospitalization, Other)
  Sender: FDA-Public Use
  Company Number: US-BRISTOL-MYERS SQUIBB COMPANY-19730530

PATIENT
  Age: 61 Year
  Sex: Female
  Weight: 83.9 kg

DRUGS (4)
  1. ABILIFY [Suspect]
     Indication: MAJOR DEPRESSION
  2. ABILIFY [Suspect]
     Indication: ANXIETY
  3. EFFEXOR [Concomitant]
     Indication: ANXIETY
  4. EFFEXOR [Concomitant]
     Indication: MAJOR DEPRESSION

REACTIONS (6)
  - Depression [Unknown]
  - Suicidal ideation [Recovered/Resolved]
  - Hypertension [Unknown]
  - Blood cholesterol increased [Unknown]
  - Cataract [Unknown]
  - Wrong technique in drug usage process [Unknown]
